FAERS Safety Report 9284759 (Version 2)
Quarter: 2013Q3

REPORT INFORMATION
  Report Type: Spontaneous
  Country: US (occurrence: US)
  Receive Date: 20130513
  Receipt Date: 20130729
  Transmission Date: 20140515
  Serious: No
  Sender: FDA-Public Use
  Company Number: US-BIOGENIDEC-2013BI039811

PATIENT
  Age: 50 Year
  Sex: Female

DRUGS (5)
  1. AVONEX [Suspect]
     Indication: MULTIPLE SCLEROSIS
     Route: 030
     Dates: start: 2012
  2. AVONEX [Suspect]
     Indication: MULTIPLE SCLEROSIS
     Route: 030
     Dates: start: 20121130
  3. AVONEX [Suspect]
     Indication: MULTIPLE SCLEROSIS
     Route: 030
     Dates: start: 20121201, end: 20130511
  4. AVONEX [Suspect]
     Indication: MULTIPLE SCLEROSIS
     Route: 030
     Dates: start: 20130713
  5. TECFIDERA [Concomitant]
     Indication: MULTIPLE SCLEROSIS
     Route: 002
     Dates: start: 201305, end: 20130614

REACTIONS (14)
  - Injection site bruising [Recovered/Resolved]
  - Stomatitis [Recovered/Resolved]
  - Stress [Recovered/Resolved]
  - Pollakiuria [Recovered/Resolved]
  - Sinusitis [Not Recovered/Not Resolved]
  - Acne [Recovered/Resolved]
  - Oral herpes [Recovered/Resolved]
  - Fungal infection [Unknown]
  - Blepharitis [Recovered/Resolved]
  - Pruritus [Recovered/Resolved]
  - Rash erythematous [Recovered/Resolved]
  - Influenza like illness [Recovered/Resolved]
  - Hypersensitivity [Recovered/Resolved]
  - Urticaria [Recovered/Resolved]
